FAERS Safety Report 5028472-2 (Version None)
Quarter: 2006Q2

REPORT INFORMATION
  Report Type: 
  Country: None (occurrence: None)
  Receive Date: 20060617
  Receipt Date: 20060606
  Transmission Date: 20061013
  Serious: Yes (Hospitalization)
  Sender: FDA-Public Use
  Company Number: FR-GLAXOSMITHKLINE-B0426625A

PATIENT
  Age: 75 Year
  Sex: Female

DRUGS (2)
  1. ADARTREL [Suspect]
     Indication: RESTLESS LEGS SYNDROME
     Route: 048
     Dates: start: 20060101, end: 20060516
  2. LEGALON [Concomitant]
     Route: 065

REACTIONS (4)
  - CHOLESTASIS [None]
  - GRANULOMATOUS LIVER DISEASE [None]
  - NEPHRITIS INTERSTITIAL [None]
  - RENAL FAILURE ACUTE [None]
